FAERS Safety Report 5385860-2 (Version None)
Quarter: 2007Q3

REPORT INFORMATION
  Report Type: 
  Country: None (occurrence: None)
  Receive Date: 20070712
  Receipt Date: 20070710
  Transmission Date: 20080115
  Serious: Yes (Hospitalization, Other)
  Sender: FDA-Public Use
  Company Number: SE-BRISTOL-MYERS SQUIBB COMPANY-13814983

PATIENT
  Age: 64 Year
  Sex: Male

DRUGS (13)
  1. ABILIFY [Suspect]
     Route: 048
     Dates: start: 20051219
  2. TRIOBE [Concomitant]
  3. TROMBYL [Concomitant]
  4. METOPROLOL SUCCINATE [Concomitant]
  5. OMEPRAZOLE [Concomitant]
  6. CERIVASTATIN SODIUM [Concomitant]
  7. FURIX [Concomitant]
  8. IMOVANE [Concomitant]
  9. PROPAVAN [Concomitant]
  10. SPIRONOLACTONE [Concomitant]
  11. IMDUR [Concomitant]
  12. ASPIRIN [Concomitant]
  13. INSULIN [Concomitant]

REACTIONS (4)
  - ATRIAL FIBRILLATION [None]
  - CARDIAC FAILURE [None]
  - DIABETES MELLITUS [None]
  - PULMONARY INFARCTION [None]
